FAERS Safety Report 9036951 (Version 1)
Quarter: 2013Q1

REPORT INFORMATION
  Report Type: Spontaneous
  Country: US (occurrence: None)
  Receive Date: 20130118
  Receipt Date: 20130118
  Transmission Date: 20140127
  Serious: Yes (Life-Threatening, Hospitalization)
  Sender: FDA-Public Use
  Company Number: None

PATIENT
  Age: 49 Year
  Sex: Male
  Weight: 72.58 kg

DRUGS (2)
  1. VIIBRYD [Suspect]
     Dosage: 1 TABLET DAILY
     Dates: start: 20121103, end: 20121108
  2. DIAZEPAM [Concomitant]

REACTIONS (4)
  - Stevens-Johnson syndrome [None]
  - Weight decreased [None]
  - Back pain [None]
  - Headache [None]
